FAERS Safety Report 25875618 (Version 1)
Quarter: 2025Q4

REPORT INFORMATION
  Report Type: Spontaneous
  Country: EU (occurrence: EU)
  Receive Date: 20251003
  Receipt Date: 20251003
  Transmission Date: 20260117
  Serious: Yes (Death, Hospitalization)
  Sender: ROCHE
  Company Number: None

PATIENT
  Age: 48 Year
  Weight: 59 kg

DRUGS (2)
  1. BEVACIZUMAB [Suspect]
     Active Substance: BEVACIZUMAB
     Indication: Ovarian cancer stage IV
     Dosage: CYCLE 4 +1: 885 MILLIGRAMS (15MG/KG) FIRST CYCLE: 05/27/2025
     Route: 042
     Dates: start: 20250527, end: 20250820
  2. PACLITAXEL [Suspect]
     Active Substance: PACLITAXEL
     Indication: Ovarian cancer stage IV
     Dosage: CYCLE 4 +1: 134 MILLIGRAMS (79.76MG/M2) FIRST CYCLE: 05/27/2025
     Route: 042
     Dates: start: 20250527, end: 20250820

REACTIONS (3)
  - Vomiting [Fatal]
  - Intestinal obstruction [Fatal]
  - Hyponatraemia [Fatal]

NARRATIVE: CASE EVENT DATE: 20250820
